FAERS Safety Report 24120493 (Version 2)
Quarter: 2024Q3

REPORT INFORMATION
  Report Type: Report from Study
  Country: US (occurrence: US)
  Receive Date: 20240722
  Receipt Date: 20240801
  Transmission Date: 20241017
  Serious: Yes (Hospitalization, Other)
  Sender: SANDOZ
  Company Number: US-002147023-NVSC2022US136598

PATIENT
  Sex: Female
  Weight: 102.95 kg

DRUGS (4)
  1. TREPROSTINIL [Suspect]
     Active Substance: TREPROSTINIL
     Dosage: 42 NG/KG/ MI N
     Route: 058
  2. TREPROSTINIL [Suspect]
     Active Substance: TREPROSTINIL
     Indication: Pulmonary arterial hypertension
     Dosage: 36 (NG/KG/MIN), CONT
     Route: 058
     Dates: start: 20210618
  3. OPSUMIT [Concomitant]
     Active Substance: MACITENTAN
     Indication: Product used for unknown indication
     Dosage: UNK
     Route: 065
  4. SILDENAFIL CITRATE [Concomitant]
     Active Substance: SILDENAFIL CITRATE
     Indication: Product used for unknown indication
     Dosage: UNK
     Route: 065

REACTIONS (10)
  - Graft infection [Unknown]
  - Mastitis [Unknown]
  - Pain [Unknown]
  - Infusion site rash [Unknown]
  - Nasopharyngitis [Unknown]
  - Malaise [Unknown]
  - Headache [Unknown]
  - Fatigue [Unknown]
  - Infusion site infection [Unknown]
  - Infusion site pain [Unknown]
